FAERS Safety Report 6286725-4 (Version None)
Quarter: 2009Q3

REPORT INFORMATION
  Report Type: 
  Country: None (occurrence: None)
  Receive Date: 20090728
  Receipt Date: 20090715
  Transmission Date: 20100115
  Serious: Yes (Other)
  Sender: FDA-Public Use
  Company Number: US-TYCO HEALTHCARE/MALLINCKRODT-T200901375

PATIENT
  Sex: Male

DRUGS (8)
  1. OPTIMARK [Suspect]
     Indication: NUCLEAR MAGNETIC RESONANCE IMAGING
     Dosage: UNK
     Route: 042
     Dates: start: 20031202, end: 20031202
  2. MAGNEVIST [Concomitant]
     Dosage: UNK
     Route: 042
  3. OMNISCAN [Suspect]
     Dosage: UNK
     Route: 042
  4. MULTIHANCE [Suspect]
     Dosage: UNK
     Route: 042
  5. PROHANCE [Suspect]
     Dosage: UNK
     Route: 042
  6. GADOLINIUM [Suspect]
     Indication: NUCLEAR MAGNETIC RESONANCE IMAGING
     Dosage: UNK
     Route: 042
     Dates: start: 20030609, end: 20030609
  7. GADOLINIUM [Suspect]
     Indication: ANGIOGRAM
     Dosage: UNK
     Route: 042
     Dates: start: 20050112, end: 20050112
  8. GADOLINIUM [Suspect]
     Dosage: UNK
     Route: 042
     Dates: start: 20050308, end: 20050308

REACTIONS (1)
  - NEPHROGENIC SYSTEMIC FIBROSIS [None]
